FAERS Safety Report 5291971-2 (Version None)
Quarter: 2007Q2

REPORT INFORMATION
  Report Type: 
  Country: None (occurrence: None)
  Receive Date: 20070410
  Receipt Date: 20070330
  Transmission Date: 20071010
  Serious: No
  Sender: FDA-Public Use
  Company Number: 2006UW07772

PATIENT
  Age: 48 Year
  Sex: Male
  Weight: 95.5 kg

DRUGS (5)
  1. SEROQUEL [Suspect]
     Indication: DEPRESSION
     Route: 048
     Dates: start: 20050101, end: 20060101
  2. SEROQUEL [Suspect]
     Route: 048
     Dates: start: 20050101, end: 20060101
  3. GEODON [Concomitant]
  4. RISPERDAL [Concomitant]
  5. CLONAZEPAM [Concomitant]

REACTIONS (1)
  - DIABETES MELLITUS [None]
